FAERS Safety Report 10171498 (Version 1)
Quarter: 2014Q2

REPORT INFORMATION
  Report Type: Spontaneous
  Country: US (occurrence: US)
  Receive Date: 20140514
  Receipt Date: 20140514
  Transmission Date: 20141212
  Serious: Yes (Death)
  Sender: FDA-Public Use
  Company Number: US-PFIZER INC-2014129116

PATIENT
  Age: 23 Year
  Sex: Male

DRUGS (1)
  1. XALKORI [Suspect]
     Dosage: 200 MG, 2X/DAY (1 CAPSULE)
     Route: 048
     Dates: start: 20130502

REACTIONS (1)
  - Death [Fatal]
